FAERS Safety Report 25976822 (Version 1)
Quarter: 2025Q4

REPORT INFORMATION
  Report Type: Report from Study
  Country: US (occurrence: US)
  Receive Date: 20251029
  Receipt Date: 20251029
  Transmission Date: 20260117
  Serious: Yes (Hospitalization, Other)
  Sender: ABBVIE
  Company Number: US-ABBVIE-6518026

PATIENT
  Sex: Female

DRUGS (2)
  1. CREON [Suspect]
     Active Substance: PANCRELIPASE AMYLASE\PANCRELIPASE LIPASE\PANCRELIPASE PROTEASE
     Indication: Pancreatic failure
     Dosage: DRUG STOP DATE- 2012
     Route: 048
     Dates: start: 20121023
  2. CREON [Suspect]
     Active Substance: PANCRELIPASE AMYLASE\PANCRELIPASE LIPASE\PANCRELIPASE PROTEASE
     Indication: Pancreatic failure
     Route: 048
     Dates: start: 20251022

REACTIONS (6)
  - Hospitalisation [Not Recovered/Not Resolved]
  - Hospitalisation [Recovered/Resolved]
  - Abdominal pain upper [Recovered/Resolved]
  - Chronic kidney disease [Unknown]
  - Pancreatitis chronic [Unknown]
  - Surgery [Unknown]

NARRATIVE: CASE EVENT DATE: 20250101
